FAERS Safety Report 5904960-9 (Version None)
Quarter: 2008Q3

REPORT INFORMATION
  Report Type: 
  Country: None (occurrence: None)
  Receive Date: 20080909
  Receipt Date: 20080422
  Transmission Date: 20090109
  Serious: Yes (Hospitalization)
  Sender: FDA-Public Use
  Company Number: 163-20785-08041698

PATIENT
  Age: 71 Year
  Sex: Male

DRUGS (8)
  1. THALOMID [Suspect]
     Indication: MULTIPLE MYELOMA
     Dosage: 50 MG, 1 IN 1 D, ORAL ; 100 MG, 2 IN 1 D, ORAL
     Route: 048
     Dates: start: 20080108, end: 20080301
  2. THALOMID [Suspect]
     Indication: MULTIPLE MYELOMA
     Dosage: 50 MG, 1 IN 1 D, ORAL ; 100 MG, 2 IN 1 D, ORAL
     Route: 048
     Dates: start: 20080401
  3. VELCADE [Concomitant]
  4. DEXAMETHASONE TAB [Concomitant]
  5. CYTOXAN [Concomitant]
  6. MELPHALAN (MELPHALAN) [Concomitant]
  7. ERYTHROPOETIN (EPOETIN ALFA) [Concomitant]
  8. ASPIRIN [Concomitant]

REACTIONS (8)
  - CARDIAC FAILURE CONGESTIVE [None]
  - CHEST PAIN [None]
  - HYPERCHOLESTEROLAEMIA [None]
  - HYPERTENSION [None]
  - NEUTROPENIA [None]
  - OEDEMA [None]
  - PERICARDITIS [None]
  - PNEUMONIA [None]
